FAERS Safety Report 7960164-X (Version None)
Quarter: 2011Q4

REPORT INFORMATION
  Report Type: 
  Country: None (occurrence: None)
  Receive Date: 20111206
  Receipt Date: 20111130
  Transmission Date: 20120403
  Serious: Yes (Other)
  Sender: FDA-Public Use
  Company Number: CHPA2011SE017270

PATIENT
  Sex: Female

DRUGS (1)
  1. PURSENNID-EX LAX [Suspect]
     Dosage: 6 TABLETS IN TOTAL
     Route: 048

REACTIONS (8)
  - FAECES HARD [None]
  - ABDOMINAL DISCOMFORT [None]
  - SYNCOPE [None]
  - HAEMATOCHEZIA [None]
  - PAIN [None]
  - ABDOMINAL PAIN UPPER [None]
  - FREQUENT BOWEL MOVEMENTS [None]
  - HYPERHIDROSIS [None]
